FAERS Safety Report 5151279-2 (Version None)
Quarter: 2006Q4

REPORT INFORMATION
  Report Type: 
  Country: None (occurrence: None)
  Receive Date: 20061113
  Receipt Date: 20061113
  Transmission Date: 20070319
  Serious: Yes (Other)
  Sender: FDA-Public Use
  Company Number: None

PATIENT
  Sex: Male
  Weight: 117.9352 kg

DRUGS (2)
  1. LIPITOR [Suspect]
     Indication: CARDIAC DISORDER
     Dosage: DAILY
     Dates: start: 19850101, end: 20060101
  2. AMARYL [Suspect]
     Indication: DIABETES MELLITUS
     Dosage: DAILY
     Dates: start: 20000101

REACTIONS (2)
  - FRUSTRATION [None]
  - INFLUENZA LIKE ILLNESS [None]
